FAERS Safety Report 4672809-0 (Version None)
Quarter: 2005Q2

REPORT INFORMATION
  Report Type: 
  Country: None (occurrence: None)
  Receive Date: 20050523
  Receipt Date: 20050510
  Transmission Date: 20051028
  Serious: Yes (Hospitalization)
  Sender: FDA-Public Use
  Company Number: 2005073341

PATIENT
  Age: 65 Year
  Sex: Male

DRUGS (4)
  1. SOLU-MEDROL [Suspect]
     Indication: BRONCHITIS ACUTE
     Dosage: (2 IN 1 D), INTRAVENOUS
     Route: 042
     Dates: start: 20050201, end: 20050208
  2. UNACIM (AMPICILLIN SODIUM, SULBACTAM SODIUM) [Suspect]
     Indication: BRONCHITIS ACUTE
     Dosage: 2 GRAM (1 GRAM, 1 D), INTRAMUSCULAR
     Route: 030
     Dates: start: 20050201, end: 20050208
  3. PARACETAMOL (PARACETAMOL) [Suspect]
     Indication: BRONCHITIS ACUTE
     Dosage: 3 GRAM (3 IN 1 D), ORAL
     Route: 048
     Dates: start: 20050201, end: 20050208
  4. OXOMEMAZINE (OXOMEMAZINE) [Suspect]
     Indication: BRONCHITIS ACUTE
     Dosage: ORAL
     Route: 048
     Dates: start: 20050201, end: 20050208

REACTIONS (9)
  - ALANINE AMINOTRANSFERASE INCREASED [None]
  - BRONCHITIS [None]
  - EOSINOPHIL COUNT INCREASED [None]
  - GAMMA-GLUTAMYLTRANSFERASE INCREASED [None]
  - OEDEMA PERIPHERAL [None]
  - PURPURA [None]
  - RASH PRURITIC [None]
  - RASH SCARLATINIFORM [None]
  - TRANSIENT ACANTHOLYTIC DERMATOSIS [None]
